FAERS Safety Report 6552751-0 (Version None)
Quarter: 2010Q1

REPORT INFORMATION
  Report Type: 
  Country: None (occurrence: None)
  Receive Date: 20100126
  Receipt Date: 20100122
  Transmission Date: 20100710
  Serious: Yes (Life-Threatening)
  Sender: FDA-Public Use
  Company Number: PHHO2010FR01348

PATIENT
  Sex: Female

DRUGS (1)
  1. STI571/CGP57148B T35717+TAB [Suspect]
     Indication: ACUTE LYMPHOCYTIC LEUKAEMIA
     Dosage: UNK
     Route: 048
     Dates: end: 20100120

REACTIONS (7)
  - CARDIAC ARREST [None]
  - COMA [None]
  - ENDOTRACHEAL INTUBATION [None]
  - KLEBSIELLA SEPSIS [None]
  - MECHANICAL VENTILATION [None]
  - PYREXIA [None]
  - RESPIRATORY DISTRESS [None]
